FAERS Safety Report 10051983 (Version 2)
Quarter: 2014Q2

REPORT INFORMATION
  Report Type: Report from Study
  Country: US (occurrence: US)
  Receive Date: 20140402
  Receipt Date: 20140613
  Transmission Date: 20141212
  Serious: Yes (Hospitalization)
  Sender: FDA-Public Use
  Company Number: US-BIOGENIDEC-2014BI028085

PATIENT
  Age: 42 Year
  Sex: Female

DRUGS (7)
  1. TECFIDERA [Suspect]
     Indication: MULTIPLE SCLEROSIS
     Route: 048
     Dates: start: 20130814, end: 20130820
  2. TECFIDERA [Suspect]
     Indication: MULTIPLE SCLEROSIS
     Route: 048
     Dates: start: 20130821, end: 201405
  3. LITHIUM CARBONATE [Concomitant]
  4. VESICARE [Concomitant]
  5. SERTRALINE HCL [Concomitant]
  6. PROPRANOLOL HCL ER [Concomitant]
  7. VITAMIN D3 [Concomitant]

REACTIONS (4)
  - Multiple sclerosis relapse [Recovered/Resolved]
  - Urinary retention [Unknown]
  - Hypertonic bladder [Not Recovered/Not Resolved]
  - Balance disorder [Not Recovered/Not Resolved]
